FAERS Safety Report 9841149 (Version 1)
Quarter: 2014Q1

REPORT INFORMATION
  Report Type: Spontaneous
  Country: US (occurrence: None)
  Receive Date: 20140123
  Receipt Date: 20140123
  Transmission Date: 20141002
  Serious: Yes (Life-Threatening, Hospitalization)
  Sender: FDA-Public Use
  Company Number: None

PATIENT
  Age: 59 Year
  Sex: Female
  Weight: 72.58 kg

DRUGS (3)
  1. ELMIRON [Suspect]
     Indication: CYSTITIS INTERSTITIAL
     Route: 048
     Dates: start: 20110131, end: 20120315
  2. ELMIRON [Suspect]
     Indication: MICTURITION URGENCY
     Route: 048
     Dates: start: 20110131, end: 20120315
  3. ELMIRON [Suspect]
     Indication: POLLAKIURIA
     Route: 048
     Dates: start: 20110131, end: 20120315

REACTIONS (6)
  - No therapeutic response [None]
  - Blood alkaline phosphatase increased [None]
  - Haemoglobin decreased [None]
  - Feeling abnormal [None]
  - Colitis [None]
  - Treatment failure [None]
